FAERS Safety Report 17995477 (Version 1)
Quarter: 2020Q3

REPORT INFORMATION
  Report Type: Spontaneous
  Country: NL (occurrence: NL)
  Receive Date: 20200708
  Receipt Date: 20200708
  Transmission Date: 20201103
  Serious: Yes (Hospitalization)
  Sender: FDA-Public Use
  Company Number: NL-MYLANLABS-2020M1061997

PATIENT
  Age: 89 Year
  Sex: Female
  Weight: 44 kg

DRUGS (19)
  1. ENALAPRIL [Suspect]
     Active Substance: ENALAPRIL
     Indication: PRODUCT USED FOR UNKNOWN INDICATION
     Dosage: 1
     Dates: start: 20200614
  2. MACROGOL [Concomitant]
     Active Substance: POLYETHYLENE GLYCOLS
     Dosage: 1 DOSAGE FORM (ZN 2 DD 1 STUK)
  3. VITAMINE B COMPLEX [Concomitant]
     Active Substance: CYANOCOBALAMIN\PYRIDOXINE HYDROCHLORIDE\RIBOFLAVIN\SODIUM PANTOTHENATE\THIAMINE HYDROCHLORIDE\VITAMIN B COMPLEX
     Dosage: 1 DOSAGE FORM, QD (1 DD 1 TABLET)
  4. CRANBERRY + VITAMIN C              /06356601/ [Concomitant]
     Dosage: 1 DOSAGE FORM, BID (2 MAAL PER DAG 1 CAPSULE OM 8U EN 21U ^CAPSULE MAG OPENGEMAAKT WORDEN^, ORAAL)
     Route: 048
     Dates: start: 20181003
  5. CARBOMER [Concomitant]
     Active Substance: CARBOMER
     Dosage: 1 GTT DROPS, QD
  6. PARACETAMOL [Concomitant]
     Active Substance: ACETAMINOPHEN
     Dosage: 1000 MILLIGRAM (ZO NODIG 1 DD 1 TABLET VAN 1000MG (= 1000 MG) 1 TABLET EXTRA)
  7. FUSIDINEZUUR [Concomitant]
     Dosage: 1 DOSAGE FORM, QD (1 DD AANBRENGEN VOLGENS AFSPRAAK)
  8. FOLIUMZUUR [Concomitant]
     Active Substance: FOLIC ACID
     Dosage: 5 MILLIGRAM, QD (1 DD 1)
  9. BUMETANIDE. [Concomitant]
     Active Substance: BUMETANIDE
     Dosage: 5 MILLIGRAM, QD (1 DD 5 MG)
  10. CALENDULA ^WELEDA^ [Concomitant]
     Dosage: 1 DOSAGE FORM, BID (2 MAAL PER DAG OM 8U EN 21U ^OP HUID LINKERARM AANBRENGEN^, CUTAAN)
     Route: 003
     Dates: start: 20190123
  11. HYPROMELLOSE [Concomitant]
     Active Substance: HYPROMELLOSES
     Dosage: 1 GTT DROPS, Q8H (3 DD 1 DRUPPEL)
  12. MAGNESIUMHYDROXIDE [Concomitant]
     Dosage: 724 MILLIGRAM, QD (1 DD 1)
  13. FENTANYL. [Concomitant]
     Active Substance: FENTANYL
     Dosage: 1 DOSAGE FORM, Q3D (1 X PER 3 DAGEN 1 PLEISTER)
  14. BISACODYL. [Concomitant]
     Active Substance: BISACODYL
     Dosage: 10 MILLIGRAM (8 MINUTES, 3 DD 2 TABLETTEN)
  15. OXYCODON [Concomitant]
     Active Substance: OXYCODONE
     Dosage: UNK
  16. CLONAZEPAM. [Concomitant]
     Active Substance: CLONAZEPAM
     Dosage: UNK UNK, QD (1 DD 1)
  17. COLECALCIFEROL [Concomitant]
     Active Substance: CHOLECALCIFEROL
     Dosage: 5600 INTERNATIONAL UNIT, QW (1 X PER WEEK 2 TABLETTEN)
  18. METOCLOPRAMIDE. [Concomitant]
     Active Substance: METOCLOPRAMIDE
     Dosage: 10 MILLIGRAM (ZN 2 DD 1)
  19. OMEPRAZOL                          /00661201/ [Concomitant]
     Active Substance: OMEPRAZOLE
     Dosage: 20 MILLIGRAM, QD (1 DD 1 CAPSULE VAN 20MG)

REACTIONS (3)
  - Renal impairment [Not Recovered/Not Resolved]
  - Hypotension [Recovering/Resolving]
  - Wrong patient received product [Unknown]

NARRATIVE: CASE EVENT DATE: 20200614
